FAERS Safety Report 10802877 (Version 2)
Quarter: 2015Q1

REPORT INFORMATION
  Report Type: Spontaneous
  Country: US (occurrence: US)
  Receive Date: 20150217
  Receipt Date: 20150220
  Transmission Date: 20150721
  Serious: No
  Sender: FDA-Public Use
  Company Number: US-009507513-1502USA007627

PATIENT
  Sex: Female
  Weight: 74.38 kg

DRUGS (1)
  1. NEXPLANON [Suspect]
     Active Substance: ETONOGESTREL
     Indication: CONTRACEPTION
     Dosage: UNK
     Route: 059
     Dates: start: 20130923

REACTIONS (6)
  - Headache [Unknown]
  - Menorrhagia [Unknown]
  - Fatigue [Unknown]
  - Night sweats [Unknown]
  - Breast tenderness [Unknown]
  - Nausea [Unknown]
